FAERS Safety Report 19419894 (Version 1)
Quarter: 2021Q2

REPORT INFORMATION
  Report Type: Spontaneous
  Country: US (occurrence: US)
  Receive Date: 20210615
  Receipt Date: 20210615
  Transmission Date: 20210717
  Serious: No
  Sender: FDA-Public Use
  Company Number: US-JNJFOC-20210605937

PATIENT
  Age: 83 Year
  Sex: Female

DRUGS (1)
  1. WOMENS ROGAINE UNSCENTED [Suspect]
     Active Substance: MINOXIDIL
     Indication: ALOPECIA
     Dosage: DOSE: HALF A CAP FULL
     Route: 065
     Dates: start: 20210514

REACTIONS (2)
  - Product use in unapproved indication [Unknown]
  - Application site warmth [Recovered/Resolved]

NARRATIVE: CASE EVENT DATE: 20210514
